FAERS Safety Report 14943006 (Version 2)
Quarter: 2018Q2

REPORT INFORMATION
  Report Type: Report from Study
  Country: US (occurrence: US)
  Receive Date: 20180528
  Receipt Date: 20180624
  Transmission Date: 20180711
  Serious: No
  Sender: FDA-Public Use
  Company Number: PHEH2018US019314

PATIENT
  Sex: Male

DRUGS (3)
  1. OMNITROPE [Suspect]
     Active Substance: SOMATROPIN
     Dosage: UNK
     Route: 065
  2. OMNITROPE [Suspect]
     Active Substance: SOMATROPIN
     Indication: HYPOPITUITARISM
     Dosage: 0.7 MG, QD
     Route: 058
     Dates: start: 20170918, end: 20180429
  3. ELDERBERRY [Suspect]
     Active Substance: HERBALS
     Indication: COUGH
     Route: 065

REACTIONS (5)
  - Fluid retention [Unknown]
  - Pruritus generalised [Unknown]
  - Urticaria [Unknown]
  - Drug hypersensitivity [Recovered/Resolved]
  - Cough [Unknown]
